FAERS Safety Report 7579891-1 (Version None)
Quarter: 2011Q2

REPORT INFORMATION
  Report Type: 
  Country: None (occurrence: None)
  Receive Date: 20110629
  Receipt Date: 20110616
  Transmission Date: 20111010
  Serious: Yes (Other)
  Sender: FDA-Public Use
  Company Number: JP-ELI_LILLY_AND_COMPANY-JP201106005796

PATIENT
  Age: 75 Year
  Sex: Female

DRUGS (1)
  1. FORTEO [Suspect]
     Dosage: UNK
     Route: 058
     Dates: start: 20110526, end: 20110614

REACTIONS (4)
  - ASCITES [None]
  - DRUG DOSE OMISSION [None]
  - DECREASED APPETITE [None]
  - INJECTION SITE HAEMATOMA [None]
